FAERS Safety Report 5258927-7 (Version None)
Quarter: 2007Q1

REPORT INFORMATION
  Report Type: 
  Country: None (occurrence: None)
  Receive Date: 20061117
  Receipt Date: 20051229
  Transmission Date: 20070707
  Serious: Yes (Hospitalization)
  Sender: FDA-Public Use
  Company Number: US-JNJFOC-20051206191

PATIENT
  Age: 62 Year
  Sex: Male
  Weight: 86.1834 kg

DRUGS (9)
  1. LEVAQUIN [Suspect]
     Indication: DRUG USE FOR UNKNOWN INDICATION
  2. WALGREEN'S STEP 1 21MG NICOTINE (NICOTINE) PATCH [Suspect]
     Indication: SMOKING CESSATION THERAPY
     Dosage: 21 MG
     Dates: start: 20051217
  3. FLOMAX [Concomitant]
  4. AVODART (ALL OTHER THERAPEUTIC PRODUCTS) [Concomitant]
  5. PREVACID [Concomitant]
  6. RELAFEN [Concomitant]
  7. OXYCODONE HCL [Concomitant]
  8. URECHOLINE [Concomitant]
  9. MULTI-VITAMINS [Concomitant]

REACTIONS (4)
  - COUGH [None]
  - LOCAL SWELLING [None]
  - PULMONARY MYCOSIS [None]
  - SINUSITIS FUNGAL [None]
